FAERS Safety Report 18407211 (Version 1)
Quarter: 2020Q4

REPORT INFORMATION
  Report Type: Other
  Country: JP (occurrence: JP)
  Receive Date: 20201021
  Receipt Date: 20201021
  Transmission Date: 20210114
  Serious: Yes (Other)
  Sender: FDA-Public Use
  Company Number: JP-ROCHE-2698325

PATIENT
  Age: 74 Year

DRUGS (2)
  1. ENTRECTINIB [Suspect]
     Active Substance: ENTRECTINIB
     Indication: NON-SMALL CELL LUNG CANCER
     Dosage: DOSE INTERVAL UNCERTAINTY
     Route: 048
     Dates: start: 20200817, end: 20200911
  2. ENTRECTINIB [Suspect]
     Active Substance: ENTRECTINIB
     Dosage: DOSE INTERVAL UNCERTAINTY
     Route: 048
     Dates: start: 202010

REACTIONS (1)
  - Renal impairment [Recovering/Resolving]

NARRATIVE: CASE EVENT DATE: 20200911
